FAERS Safety Report 23262401 (Version 1)
Quarter: 2023Q4

REPORT INFORMATION
  Report Type: Spontaneous
  Country: US (occurrence: US)
  Receive Date: 20231205
  Receipt Date: 20231205
  Transmission Date: 20240110
  Serious: No
  Sender: FDA-Public Use
  Company Number: US-drreddys-LIT/USA/23/0187603

PATIENT
  Sex: Female

DRUGS (5)
  1. ZOLEDRONIC ACID [Suspect]
     Active Substance: ZOLEDRONIC ACID
     Indication: Osteoporosis
  2. ROMOSOZUMAB [Concomitant]
     Active Substance: ROMOSOZUMAB
     Indication: Osteoporosis
  3. VITAMIN D [Concomitant]
     Active Substance: VITAMIN D NOS
     Indication: Osteoporosis
  4. CALCIUM CITRATE [Concomitant]
     Active Substance: CALCIUM CITRATE
     Indication: Osteoporosis
  5. URSODIOL [Concomitant]
     Active Substance: URSODIOL
     Indication: Osteoporosis

REACTIONS (2)
  - Drug ineffective [Unknown]
  - Kyphoscoliosis [Unknown]
